FAERS Safety Report 19087703 (Version 5)
Quarter: 2023Q2

REPORT INFORMATION
  Report Type: Spontaneous
  Country: PT (occurrence: PT)
  Receive Date: 20210402
  Receipt Date: 20230623
  Transmission Date: 20230722
  Serious: Yes (Hospitalization, Other)
  Sender: FDA-Public Use
  Company Number: NVSC2021PT050802

PATIENT
  Age: 42 Year
  Sex: Female

DRUGS (13)
  1. INFLIXIMAB [Suspect]
     Active Substance: INFLIXIMAB
     Indication: Pyoderma gangrenosum
     Dosage: UNK
     Route: 065
  2. INFLIXIMAB [Suspect]
     Active Substance: INFLIXIMAB
     Dosage: 10 MG/KG, MAINTENANCE THERAPY, INDUCTION DOSE AT WEEK 0,2 AND 6
     Route: 065
  3. ADALIMUMAB [Suspect]
     Active Substance: ADALIMUMAB
     Indication: Pyoderma gangrenosum
     Dosage: 1 DF, QW
     Route: 065
  4. ADALIMUMAB [Suspect]
     Active Substance: ADALIMUMAB
     Dosage: 80 MG, INDUCTION DOSE AT WEEK 0 AND 2
     Route: 065
  5. ADALIMUMAB [Suspect]
     Active Substance: ADALIMUMAB
     Dosage: 40 MG, BIW (MAINTENANCE PHASE)
     Route: 065
  6. ADALIMUMAB [Suspect]
     Active Substance: ADALIMUMAB
     Dosage: MAINTENANCE THERAPY
     Route: 065
  7. HYDROCORTISONE [Concomitant]
     Active Substance: HYDROCORTISONE
     Indication: Pyoderma gangrenosum
     Dosage: 400 MG, QD (INDUCTION)
     Route: 065
  8. PREDNISOLONE [Concomitant]
     Active Substance: PREDNISOLONE
     Indication: Pyoderma gangrenosum
     Dosage: UNKNOWN
     Route: 048
  9. PREDNISOLONE [Concomitant]
     Active Substance: PREDNISOLONE
     Dosage: 0.75 MG/KG, QD (60 MG)
     Route: 048
     Dates: start: 201807
  10. MESALAMINE [Concomitant]
     Active Substance: MESALAMINE
     Indication: Colitis ulcerative
     Dosage: 3 G QD
     Route: 048
  11. MESALAMINE [Concomitant]
     Active Substance: MESALAMINE
     Dosage: UNK
     Route: 061
  12. MESALAMINE [Concomitant]
     Active Substance: MESALAMINE
     Dosage: 4.5 G, QD
     Route: 048
  13. MESALAMINE [Concomitant]
     Active Substance: MESALAMINE
     Dosage: MAINTENANCE THERAPY
     Route: 065

REACTIONS (2)
  - Pseudomonas infection [Recovered/Resolved]
  - Drug ineffective for unapproved indication [Unknown]
